FAERS Safety Report 7480531-0 (Version None)
Quarter: 2011Q2

REPORT INFORMATION
  Report Type: 
  Country: None (occurrence: None)
  Receive Date: 20110516
  Receipt Date: 20100209
  Transmission Date: 20111010
  Serious: No
  Sender: FDA-Public Use
  Company Number: 2010BI005303

PATIENT
  Age: 54 Year
  Sex: Female

DRUGS (1)
  1. TYSABRI [Suspect]
     Indication: MULTIPLE SCLEROSIS
     Route: 042
     Dates: start: 20090617

REACTIONS (5)
  - MEMORY IMPAIRMENT [None]
  - VIBRATORY SENSE INCREASED [None]
  - FATIGUE [None]
  - MUSCULAR WEAKNESS [None]
  - KNEE DEFORMITY [None]
